FAERS Safety Report 16067850 (Version 1)
Quarter: 2019Q2

REPORT INFORMATION
  Report Type: Spontaneous
  Country: US (occurrence: US)
  Receive Date: 20190313
  Receipt Date: 20190313
  Transmission Date: 20190711
  Serious: Yes (Hospitalization)
  Sender: FDA-Public Use
  Company Number: None

PATIENT
  Age: 41 Year
  Sex: Female
  Weight: 82.8 kg

DRUGS (10)
  1. CLINDAMYCIN. [Concomitant]
     Active Substance: CLINDAMYCIN
     Dates: start: 20190212
  2. OMEPRAZOLE. [Concomitant]
     Active Substance: OMEPRAZOLE
     Dates: start: 20181219
  3. DEPAKOTE [Concomitant]
     Active Substance: DIVALPROEX SODIUM
     Dates: start: 20181212, end: 20190313
  4. TERBINAFINE 1% EXTERNAL [Concomitant]
     Dates: start: 20190130
  5. HYDROXYZINE [Concomitant]
     Active Substance: HYDROXYZINE HYDROCHLORIDE
     Dates: start: 20181219
  6. NAPROXEN. [Concomitant]
     Active Substance: NAPROXEN
     Dates: start: 20190130
  7. METOPROLOL TARTRATE. [Concomitant]
     Active Substance: METOPROLOL TARTRATE
     Dates: start: 20181219
  8. EPCLUSA [Suspect]
     Active Substance: SOFOSBUVIR\VELPATASVIR
     Indication: HEPATITIS C
     Route: 048
     Dates: start: 20181204, end: 20190313
  9. NYSTATIN. [Concomitant]
     Active Substance: NYSTATIN
     Dates: start: 20190212, end: 20190226
  10. SEROQUEL [Concomitant]
     Active Substance: QUETIAPINE FUMARATE
     Dates: start: 20181212, end: 20190313

REACTIONS (4)
  - Skin fissures [None]
  - Fungal skin infection [None]
  - Perineal cellulitis [None]
  - Cellulitis [None]

NARRATIVE: CASE EVENT DATE: 20190110
